FAERS Safety Report 8375969-3 (Version None)
Quarter: 2012Q2

REPORT INFORMATION
  Report Type: 
  Country: None (occurrence: None)
  Receive Date: 20120517
  Receipt Date: 20120507
  Transmission Date: 20120825
  Serious: Yes (Other)
  Sender: FDA-Public Use
  Company Number: DKLU1079463

PATIENT
  Sex: Male

DRUGS (1)
  1. ONFI [Suspect]
     Dates: start: 20120301

REACTIONS (5)
  - SOMNOLENCE [None]
  - GRAND MAL CONVULSION [None]
  - TREMOR [None]
  - WEIGHT INCREASED [None]
  - GAIT DISTURBANCE [None]
